FAERS Safety Report 9778330 (Version 1)
Quarter: 2013Q4

REPORT INFORMATION
  Report Type: Spontaneous
  Country: US (occurrence: None)
  Receive Date: 20131220
  Receipt Date: 20131220
  Transmission Date: 20140711
  Serious: Yes (Other)
  Sender: FDA-Public Use
  Company Number: None

PATIENT
  Age: 77 Year
  Sex: Male

DRUGS (5)
  1. SYSTANE-BALANCE [Suspect]
     Indication: DRY EYE
     Dosage: ONE OR TWO DROPS EACH EYE AT BEDTIME
     Dates: start: 20130822, end: 20130823
  2. AMBIEN [Concomitant]
  3. ATAVAN [Concomitant]
  4. ASPIRIN [Concomitant]
  5. CENTRUM SILVER MEN OVER FIFTY [Concomitant]

REACTIONS (1)
  - Deafness [None]
